FAERS Safety Report 17559069 (Version 1)
Quarter: 2020Q1

REPORT INFORMATION
  Report Type: Spontaneous
  Country: US (occurrence: US)
  Receive Date: 20200319
  Receipt Date: 20200319
  Transmission Date: 20200409
  Serious: No
  Sender: FDA-Public Use
  Company Number: US-GLENMARK PHARMACEUTICALS-2019GMK040358

PATIENT

DRUGS (2)
  1. MUPIROCIN CREAM USP, 2% [Suspect]
     Active Substance: MUPIROCIN
     Indication: PREOPERATIVE CARE
     Dosage: UNK UNK, BID (PEA SIZED)
     Route: 045
  2. MUPIROCIN CREAM USP, 2% [Suspect]
     Active Substance: MUPIROCIN
     Indication: PROPHYLAXIS

REACTIONS (3)
  - Product use in unapproved indication [Unknown]
  - Treatment noncompliance [Unknown]
  - Product prescribing error [Unknown]
